FAERS Safety Report 13467310 (Version 2)
Quarter: 2017Q2

REPORT INFORMATION
  Report Type: Spontaneous
  Country: IT (occurrence: IT)
  Receive Date: 20170421
  Receipt Date: 20170529
  Transmission Date: 20170830
  Serious: Yes (Other)
  Sender: FDA-Public Use
  Company Number: IT-TEVA-761262ACC

PATIENT
  Age: 17 Year
  Sex: Male

DRUGS (2)
  1. QUETIAPINA TEVA - TEVA ITALIA S.R.L. [Suspect]
     Active Substance: QUETIAPINE
     Indication: BIPOLAR II DISORDER
     Dosage: 150 MILLIGRAM DAILY;
     Route: 048
     Dates: start: 20170228, end: 20170302
  2. LITHIUM CARBONATE. [Concomitant]
     Active Substance: LITHIUM CARBONATE
     Indication: PRODUCT USED FOR UNKNOWN INDICATION
     Route: 048

REACTIONS (4)
  - Pharyngeal paraesthesia [Recovered/Resolved]
  - Dizziness [Recovered/Resolved]
  - Reaction to drug excipients [Unknown]
  - Dyspnoea [Recovered/Resolved]

NARRATIVE: CASE EVENT DATE: 20170228
